FAERS Safety Report 7761380-2 (Version None)
Quarter: 2011Q3

REPORT INFORMATION
  Report Type: 
  Country: None (occurrence: None)
  Receive Date: 20110920
  Receipt Date: 20110913
  Transmission Date: 20111222
  Serious: Yes (Other)
  Sender: FDA-Public Use
  Company Number: US-PFIZER INC-2011216829

PATIENT
  Sex: Male

DRUGS (1)
  1. TOVIAZ [Suspect]
     Dosage: 4 MG, UNK

REACTIONS (1)
  - URINARY RETENTION [None]
